FAERS Safety Report 25135489 (Version 1)
Quarter: 2025Q1

REPORT INFORMATION
  Report Type: Spontaneous
  Country: IN (occurrence: IN)
  Receive Date: 20250328
  Receipt Date: 20250328
  Transmission Date: 20250409
  Serious: Yes (Hospitalization, Other)
  Sender: INSUD PHARMA
  Company Number: IN-INSUD PHARMA-2503IN02249

PATIENT

DRUGS (2)
  1. NUVESSA [Suspect]
     Active Substance: METRONIDAZOLE
     Indication: Liver abscess
     Route: 048
  2. NUVESSA [Suspect]
     Active Substance: METRONIDAZOLE
     Route: 042

REACTIONS (9)
  - Neurotoxicity [Recovered/Resolved]
  - Blindness cortical [Recovered/Resolved]
  - Anosognosia [Recovered/Resolved]
  - Clumsiness [Recovered/Resolved]
  - Irritability [Recovered/Resolved]
  - Agitation [Recovered/Resolved]
  - White blood cell count increased [Unknown]
  - Hepatomegaly [Unknown]
  - Hypertransaminasaemia [Unknown]
